FAERS Safety Report 17453076 (Version 2)
Quarter: 2020Q1

REPORT INFORMATION
  Report Type: Spontaneous
  Country: FR (occurrence: FR)
  Receive Date: 20200224
  Receipt Date: 20200228
  Transmission Date: 20200409
  Serious: Yes (Hospitalization)
  Sender: FDA-Public Use
  Company Number: FR-BAYER-2020-027110

PATIENT
  Age: 55 Year
  Sex: Male
  Weight: 74 kg

DRUGS (3)
  1. IOMERON [Suspect]
     Active Substance: IOMEPROL
     Indication: COMPUTERISED TOMOGRAM
     Dosage: 1 DF
     Route: 042
     Dates: start: 20170405, end: 20170405
  2. TAZOCILLINE [Suspect]
     Active Substance: PIPERACILLIN SODIUM\TAZOBACTAM SODIUM
     Indication: WOUND
     Route: 042
     Dates: start: 20170318, end: 20170407
  3. CIPROFLOXACIN. [Suspect]
     Active Substance: CIPROFLOXACIN
     Dosage: UNK
     Route: 048
     Dates: start: 20170318, end: 20170325

REACTIONS (1)
  - Drug reaction with eosinophilia and systemic symptoms [Recovered/Resolved]

NARRATIVE: CASE EVENT DATE: 20170325
